FAERS Safety Report 8415717-1 (Version None)
Quarter: 2012Q2

REPORT INFORMATION
  Report Type: 
  Country: None (occurrence: None)
  Receive Date: 20120606
  Receipt Date: 20120529
  Transmission Date: 20120825
  Serious: Yes (Death, Hospitalization)
  Sender: FDA-Public Use
  Company Number: GR-JNJFOC-20120509106

PATIENT
  Sex: Male

DRUGS (17)
  1. LONALGAL [Concomitant]
     Indication: CANCER PAIN
     Route: 048
     Dates: start: 20111025
  2. ABIRATERONE ACETATE [Suspect]
     Indication: PROSTATE CANCER METASTATIC
     Route: 048
     Dates: start: 20091222
  3. ARVEKAP [Concomitant]
     Route: 030
     Dates: start: 20060929
  4. PREDNISOLONE [Suspect]
     Indication: PROSTATE CANCER METASTATIC
     Route: 048
     Dates: start: 20091222
  5. LANSOPRAZOLE [Concomitant]
     Indication: GASTROINTESTINAL DISORDER THERAPY
     Dosage: AS REQUIRED
     Route: 048
     Dates: start: 20080101
  6. ARVEKAP [Concomitant]
     Indication: PROSTATE CANCER
     Route: 030
     Dates: start: 20091222
  7. LAPRAZOL [Concomitant]
     Indication: GASTROINTESTINAL DISORDER THERAPY
     Route: 048
     Dates: start: 20101001
  8. LONARID-N [Concomitant]
     Indication: CANCER PAIN
     Route: 048
     Dates: start: 20120313
  9. ARVEKAP [Concomitant]
     Route: 030
     Dates: start: 20091222
  10. ZOLEDRONIC ACID [Concomitant]
     Indication: PROPHYLAXIS
     Route: 042
  11. TIOTROPIUM [Concomitant]
     Indication: CHRONIC OBSTRUCTIVE PULMONARY DISEASE
     Route: 055
     Dates: start: 19940101
  12. ABIRATERONE ACETATE [Suspect]
     Route: 048
  13. ARVEKAP [Concomitant]
     Indication: HORMONE THERAPY
     Route: 030
     Dates: start: 20060929
  14. STALEVO 100 [Concomitant]
     Indication: EXTRAPYRAMIDAL DISORDER
     Route: 048
     Dates: start: 20101101
  15. DEPON [Concomitant]
     Indication: BONE PAIN
     Route: 048
     Dates: start: 20101001
  16. DEPON [Concomitant]
     Indication: CANCER PAIN
     Route: 048
  17. BUDESONIDE [Concomitant]
     Indication: CHRONIC OBSTRUCTIVE PULMONARY DISEASE
     Route: 055
     Dates: start: 19940101

REACTIONS (2)
  - PYREXIA [None]
  - URINARY TRACT INFECTION [None]
